FAERS Safety Report 8604437-6 (Version None)
Quarter: 2012Q3

REPORT INFORMATION
  Report Type: 
  Country: None (occurrence: None)
  Receive Date: 20120820
  Receipt Date: 20120808
  Transmission Date: 20120928
  Serious: Yes (Other)
  Sender: FDA-Public Use
  Company Number: IT-JNJFOC-20120803962

PATIENT
  Age: 46 Year
  Sex: Female
  Weight: 80 kg

DRUGS (5)
  1. INVEGA [Suspect]
     Indication: PRODUCT USED FOR UNKNOWN INDICATION
     Route: 048
     Dates: start: 20120808, end: 20120808
  2. LEVOTHYROXINE SODIUM [Suspect]
     Indication: PRODUCT USED FOR UNKNOWN INDICATION
     Route: 048
     Dates: start: 20120808, end: 20120808
  3. SEROQUEL [Suspect]
     Indication: PRODUCT USED FOR UNKNOWN INDICATION
     Route: 048
     Dates: start: 20120808, end: 20120808
  4. FERROUS SULFATE TAB [Suspect]
     Indication: PRODUCT USED FOR UNKNOWN INDICATION
     Route: 048
     Dates: start: 20120808, end: 20120808
  5. FLURAZEPAM HYDROCHLORIDE [Suspect]
     Indication: PRODUCT USED FOR UNKNOWN INDICATION
     Route: 048
     Dates: start: 20120808, end: 20120808

REACTIONS (5)
  - MULTIPLE DRUG OVERDOSE INTENTIONAL [None]
  - TACHYCARDIA [None]
  - PAIN [None]
  - SELF INJURIOUS BEHAVIOUR [None]
  - COMA [None]
